FAERS Safety Report 24914216 (Version 1)
Quarter: 2025Q1

REPORT INFORMATION
  Report Type: Spontaneous
  Country: US (occurrence: US)
  Receive Date: 20250202
  Receipt Date: 20250202
  Transmission Date: 20250409
  Serious: No
  Sender: ELI LILLY AND COMPANY
  Company Number: US-ELI_LILLY_AND_COMPANY-US202502000078

PATIENT
  Age: 67 Year
  Sex: Male

DRUGS (2)
  1. FORTEO [Suspect]
     Active Substance: TERIPARATIDE
     Indication: Osteoporosis
     Route: 058
     Dates: start: 20241101, end: 202411
  2. FORTEO [Suspect]
     Active Substance: TERIPARATIDE
     Route: 058
     Dates: start: 20250101

REACTIONS (7)
  - Ear pain [Recovered/Resolved]
  - Ear discomfort [Recovered/Resolved]
  - Blood creatinine increased [Unknown]
  - Off label use [Unknown]
  - Diarrhoea [Recovered/Resolved]
  - Dizziness postural [Recovered/Resolved]
  - Blood calcium increased [Unknown]

NARRATIVE: CASE EVENT DATE: 20241101
